FAERS Safety Report 10012245 (Version 1)
Quarter: 2014Q1

REPORT INFORMATION
  Report Type: Report from Study
  Country: US (occurrence: US)
  Receive Date: 20140314
  Receipt Date: 20140314
  Transmission Date: 20141002
  Serious: Yes (Hospitalization)
  Sender: FDA-Public Use
  Company Number: 2013SP005565

PATIENT
  Age: 65 Year
  Sex: Female
  Weight: 42.3 kg

DRUGS (28)
  1. SODIUM CHLORIDE [Concomitant]
     Dates: start: 2011
  2. MACROGOL [Concomitant]
  3. DOXORUBICIN [Suspect]
     Indication: SARCOMA METASTATIC
     Dates: start: 20121212
  4. DOXORUBICIN [Suspect]
     Indication: SARCOMA METASTATIC
     Route: 040
     Dates: start: 20130403, end: 20130403
  5. ACETYLSALICYLIC ACID [Concomitant]
     Dates: start: 20120222
  6. CLOPIDOGREL BISULFATE [Concomitant]
     Dates: start: 20120222
  7. ATORVASTATIN CALCIUM [Concomitant]
     Dates: start: 20120222
  8. METOPROLOL [Concomitant]
     Dates: start: 20120222
  9. LISINOPRIL [Concomitant]
     Dates: start: 20120222, end: 20130327
  10. MOMETASONE FUROATE [Concomitant]
     Dates: start: 2007, end: 201212
  11. SALBUTAMOL [Concomitant]
     Dates: start: 2006
  12. PANTOPRAZOLE [Concomitant]
     Dates: start: 20120222
  13. BENZOYL PEROXIDE W/CLINDAMYCIN [Concomitant]
     Dates: start: 1990
  14. TRETINOIN [Concomitant]
     Dates: start: 1990, end: 201301
  15. PARACETAMOL [Concomitant]
     Dates: start: 20121212
  16. DIPHENHYDRAMINE [Concomitant]
     Dates: start: 20121212
  17. ONDANSETRON [Concomitant]
     Dates: start: 20121212
  18. LORAZEPAM [Concomitant]
     Dates: start: 20121213
  19. HYDROCODONE BITARTRATE [Concomitant]
     Dates: start: 20121212
  20. PARACETAMOL [Concomitant]
     Dates: start: 20121212
  21. APREPITANT [Concomitant]
     Dates: start: 20121212
  22. PROCHLORPERAZINE [Concomitant]
     Dates: start: 20121213
  23. PARAFFIN SOFT [Concomitant]
     Dates: start: 20130225
  24. DOCUSATE SODIUM [Concomitant]
     Dates: start: 20121217, end: 20130226
  25. DOCUSATE SODIUM [Concomitant]
     Dates: start: 20130226
  26. GUAIFENESIN [Concomitant]
     Dates: start: 201301
  27. IMODIUM [Concomitant]
     Dates: start: 201301
  28. UREA-CRESOL-SULFONATE SODIUM [Concomitant]
     Dates: start: 20130201

REACTIONS (2)
  - Cellulitis [Recovered/Resolved]
  - Pyrexia [Recovered/Resolved]
